FAERS Safety Report 8770375 (Version 2)
Quarter: 2012Q4

REPORT INFORMATION
  Report Type: Report from Study
  Country: JP (occurrence: JP)
  Receive Date: 20120906
  Receipt Date: 20121101
  Transmission Date: 20130627
  Serious: Yes (Death, Hospitalization)
  Sender: FDA-Public Use
  Company Number: JP-GENZYME-THYM-1003394

PATIENT
  Age: 34 Year
  Sex: Male
  Weight: 76 kg

DRUGS (23)
  1. THYMOGLOBULIN [Suspect]
     Indication: BONE MARROW CONDITIONING REGIMEN
     Dosage: 90 mg, qd
     Route: 065
     Dates: start: 20120326, end: 20120327
  2. CICLOSPORIN [Suspect]
     Indication: PROPHYLAXIS AGAINST GRAFT VERSUS HOST DISEASE
     Dosage: UNK
     Route: 065
     Dates: start: 20120329, end: 20120411
  3. MEROPENEM [Suspect]
     Indication: FEBRILE NEUTROPENIA
     Dosage: UNK
     Route: 065
     Dates: start: 20120329, end: 20120422
  4. DANAPAROID SODIUM [Concomitant]
     Indication: DISSEMINATED INTRAVASCULAR COAGULATION
     Dosage: UNK
     Route: 065
     Dates: start: 20120326, end: 20120413
  5. DORIPENEM HYDRATE [Concomitant]
     Indication: FEBRILE NEUTROPENIA
     Dosage: UNK
     Route: 065
     Dates: start: 20120326, end: 20120328
  6. METHYLPREDNISOLONE SODIUM SUCCINATE [Concomitant]
     Indication: PREMEDICATION
     Dosage: UNK
     Route: 065
     Dates: start: 20120326, end: 20120327
  7. GRANISETRON HYDROCHLORIDE [Concomitant]
     Indication: PROPHYLAXIS OF NAUSEA AND VOMITING
     Dosage: UNK
     Route: 065
  8. CHLORPHENIRAMINE MALEATE [Concomitant]
     Indication: ALLERGY PROPHYLAXIS
     Dosage: UNK
     Route: 065
     Dates: start: 20120326, end: 20120422
  9. VANCOMYCIN HYDROCHLORIDE [Concomitant]
     Indication: FEBRILE NEUTROPENIA
     Dosage: UNK
     Route: 065
     Dates: start: 20120331, end: 20120410
  10. METHOTREXATE [Concomitant]
     Indication: PROPHYLAXIS AGAINST GRAFT VERSUS HOST DISEASE
     Dosage: UNK
     Route: 065
     Dates: start: 20120331, end: 20120410
  11. AMIKACIN SULFATE [Concomitant]
     Indication: FEBRILE NEUTROPENIA
     Dosage: UNK
     Route: 065
     Dates: start: 20120401, end: 20120408
  12. MICAFUNGIN SODIUM [Concomitant]
     Indication: FEBRILE NEUTROPENIA
     Dosage: UNK
     Route: 065
     Dates: start: 20120401, end: 20120408
  13. FILGRASTIM [Concomitant]
     Indication: NEUTROPHIL COUNT DECREASED
     Dosage: UNK
     Route: 065
     Dates: start: 20120406, end: 20120412
  14. PREDNISOLONE [Concomitant]
     Indication: PROPHYLAXIS AGAINST GRAFT VERSUS HOST DISEASE
     Dosage: UNK
     Route: 065
     Dates: start: 20120411, end: 20120422
  15. FENTANYL CITRATE [Concomitant]
     Indication: PROPHYLAXIS
     Dosage: UNK
     Route: 065
     Dates: start: 20120411, end: 20120418
  16. MIDAZOLAM [Concomitant]
     Indication: PROPHYLAXIS
     Dosage: UNK
     Route: 065
     Dates: start: 20120411, end: 20120418
  17. NAFAMOSTAT MESILATE [Concomitant]
     Indication: THROMBOSIS PROPHYLAXIS
     Dosage: UNK
     Route: 065
     Dates: start: 20120413, end: 20120418
  18. MORPHINE HYDROCHLORIDE [Concomitant]
     Indication: PROPHYLAXIS
     Dosage: UNK
     Route: 065
     Dates: start: 20120419, end: 20120422
  19. ACICLOVIR [Concomitant]
     Indication: ANTIVIRAL PROPHYLAXIS
     Dosage: UNK
     Route: 065
  20. LANSOPRAZOLE [Concomitant]
     Indication: PROPHYLAXIS AGAINST GASTROINTESTINAL ULCER
     Dosage: UNK
     Route: 065
     Dates: start: 20120326, end: 20120422
  21. HUMAN RED BLOOD CELLS [Concomitant]
     Indication: ANAEMIA
     Dosage: UNK
     Route: 065
     Dates: start: 20120326, end: 20120419
  22. PLATELETS, HUMAN BLOOD [Concomitant]
     Indication: PLATELET COUNT DECREASED
     Dosage: UNK
     Route: 065
     Dates: start: 20120326, end: 20120420
  23. TOTAL BODY IRRADIATION [Concomitant]
     Indication: BONE MARROW CONDITIONING REGIMEN
     Dosage: UNK
     Route: 065
     Dates: start: 20120327, end: 20120329

REACTIONS (9)
  - Cerebral haemorrhage [Fatal]
  - Renal failure [Fatal]
  - Acute respiratory distress syndrome [Fatal]
  - Liver disorder [Fatal]
  - Hypoalbuminaemia [Fatal]
  - Septic shock [Fatal]
  - Sepsis [Fatal]
  - Pneumonia bacterial [Fatal]
  - Pneumonia fungal [Fatal]
